FAERS Safety Report 13564523 (Version 4)
Quarter: 2017Q3

REPORT INFORMATION
  Report Type: Report from Study
  Country: CL (occurrence: CL)
  Receive Date: 20170519
  Receipt Date: 20170911
  Transmission Date: 20171127
  Serious: Yes (Hospitalization, Other)
  Sender: FDA-Public Use
  Company Number: CL-SA-2016SA013750

PATIENT
  Age: 37 Year
  Sex: Female

DRUGS (1)
  1. LEMTRADA [Suspect]
     Active Substance: ALEMTUZUMAB
     Indication: RELAPSING-REMITTING MULTIPLE SCLEROSIS
     Dosage: EVERY 24 HOURS FOR 03 DAYS
     Route: 041
     Dates: start: 20160119, end: 20160121

REACTIONS (17)
  - Musculoskeletal pain [Recovering/Resolving]
  - Thyroxine free decreased [Not Recovered/Not Resolved]
  - Pyrexia [Not Recovered/Not Resolved]
  - Autoimmune thyroiditis [Not Recovered/Not Resolved]
  - Pyrexia [Recovering/Resolving]
  - Pain [Recovering/Resolving]
  - Tri-iodothyronine free decreased [Not Recovered/Not Resolved]
  - Discomfort [Recovered/Resolved]
  - Pneumonia bacterial [Recovering/Resolving]
  - Pyrexia [Recovered/Resolved]
  - Hypothyroidism [Not Recovered/Not Resolved]
  - Cough [Recovered/Resolved]
  - Skin lesion [Recovering/Resolving]
  - Nasal congestion [Not Recovered/Not Resolved]
  - Herpes zoster [Recovering/Resolving]
  - Nasopharyngitis [Not Recovered/Not Resolved]
  - Discomfort [Not Recovered/Not Resolved]

NARRATIVE: CASE EVENT DATE: 20160120
